FAERS Safety Report 6573277-4 (Version None)
Quarter: 2010Q1

REPORT INFORMATION
  Report Type: 
  Country: None (occurrence: None)
  Receive Date: 20100208
  Receipt Date: 20100128
  Transmission Date: 20100710
  Serious: Yes (Death, Life-Threatening)
  Sender: FDA-Public Use
  Company Number: GB-JNJFOC-20100111734

PATIENT
  Sex: Female
  Weight: 76 kg

DRUGS (5)
  1. REMICADE [Suspect]
     Indication: RHEUMATOID ARTHRITIS
     Dosage: DOSE 250
     Route: 042
  2. PARACETAMOL [Concomitant]
  3. CO-CODAMOL [Concomitant]
  4. HYDROXYCHLOROQUINE SULFATE [Concomitant]
  5. METHOTREXATE [Concomitant]

REACTIONS (2)
  - COLON CANCER [None]
  - METASTATIC NEOPLASM [None]
